FAERS Safety Report 12843585 (Version 5)
Quarter: 2020Q2

REPORT INFORMATION
  Report Type: Spontaneous
  Country: CZ (occurrence: CZ)
  Receive Date: 20161013
  Receipt Date: 20200406
  Transmission Date: 20200713
  Serious: Yes (Life-Threatening, Hospitalization, Other)
  Sender: FDA-Public Use
  Company Number: CZ-PFIZER INC-2016475059

PATIENT
  Age: 67 Year
  Sex: Female
  Weight: 85 kg

DRUGS (20)
  1. DIOVAN [Suspect]
     Active Substance: VALSARTAN
     Indication: CARDIAC FAILURE
     Dosage: 50 MG, 2X/DAY
     Route: 048
     Dates: start: 20150422, end: 20150429
  2. DIOVAN [Suspect]
     Active Substance: VALSARTAN
     Dosage: 160 MG, 2X/DAY
     Route: 048
     Dates: start: 20151012
  3. FURIX [Concomitant]
     Dosage: UNK
     Dates: start: 20150331
  4. MEROPENEM. [Concomitant]
     Active Substance: MEROPENEM
  5. ZYVOXID [Concomitant]
     Active Substance: LINEZOLID
  6. ACETAMINOPHEN. [Concomitant]
     Active Substance: ACETAMINOPHEN
  7. MEDROL [Suspect]
     Active Substance: METHYLPREDNISOLONE
     Indication: RHEUMATOID ARTHRITIS
     Dosage: 8 MG, 1X/DAY
     Route: 048
     Dates: start: 201601, end: 20160307
  8. ATROVENT [Concomitant]
     Active Substance: IPRATROPIUM BROMIDE
     Dosage: UNK
     Dates: start: 201410
  9. EUPHYLLINE [AMINOPHYLLINE] [Concomitant]
     Dosage: UNK
     Dates: start: 20140810
  10. DIOVAN [Suspect]
     Active Substance: VALSARTAN
     Dosage: 160 MG, 2X/DAY
     Route: 048
     Dates: start: 20150916, end: 20151012
  11. MILURIT [Concomitant]
     Active Substance: ALLOPURINOL
     Dosage: UNK
     Dates: start: 200509
  12. IMIPENEM [Concomitant]
     Active Substance: IMIPENEM
  13. PLAQUENIL [HYDROXYCHLOROQUINE PHOSPHATE] [Concomitant]
     Active Substance: HYDROXYCHLOROQUINE DIPHOSPHATE
     Dosage: UNK
  14. METRONIDAZOL /00012501/ [Concomitant]
     Active Substance: METRONIDAZOLE
  15. DIOVAN [Suspect]
     Active Substance: VALSARTAN
     Dosage: 160 MG, 2X/DAY
     Route: 048
     Dates: start: 20150514
  16. METHOTREXATE. [Concomitant]
     Active Substance: METHOTREXATE
  17. MEDROL [Suspect]
     Active Substance: METHYLPREDNISOLONE
     Dosage: 16 MG, 1X/DAY
     Route: 048
     Dates: start: 20160715
  18. ARAVA [Suspect]
     Active Substance: LEFLUNOMIDE
     Dosage: 20 MG, 2X/DAY
     Route: 048
     Dates: start: 201501, end: 20160310
  19. MEDROL [Suspect]
     Active Substance: METHYLPREDNISOLONE
     Dosage: 8 MG, 1X/DAY
     Route: 048
     Dates: end: 20160628
  20. SULFASALAZINE DELAYED-RELEASE [Concomitant]
     Active Substance: SULFASALAZINE
     Dosage: UNK
     Dates: start: 2014

REACTIONS (21)
  - Abdominal pain [Recovered/Resolved]
  - Peripheral ischaemia [Recovered/Resolved]
  - Gastroenteritis [Recovered/Resolved]
  - Acute kidney injury [Recovered/Resolved]
  - Cardiac tamponade [Recovered/Resolved]
  - Atrial fibrillation [Recovered/Resolved]
  - Tachycardia [Recovered/Resolved with Sequelae]
  - Dyspnoea [Recovered/Resolved with Sequelae]
  - Hypotension [Recovered/Resolved with Sequelae]
  - Vulvovaginitis [Recovered/Resolved]
  - Pyrexia [Recovered/Resolved]
  - Leukocytosis [Recovered/Resolved]
  - Urinary tract infection [Unknown]
  - Liver injury [Recovered/Resolved]
  - Shock [Recovered/Resolved]
  - Inflammatory marker increased [Recovered/Resolved]
  - C-reactive protein increased [Recovered/Resolved]
  - Sepsis [Recovered/Resolved]
  - Endocarditis [Recovered/Resolved]
  - Pneumonia [Recovered/Resolved]
  - Gastritis [Recovered/Resolved]

NARRATIVE: CASE EVENT DATE: 20160308
